FAERS Safety Report 16607841 (Version 4)
Quarter: 2020Q3

REPORT INFORMATION
  Report Type: Spontaneous
  Country: US (occurrence: US)
  Receive Date: 20190722
  Receipt Date: 20200904
  Transmission Date: 20201102
  Serious: No
  Sender: FDA-Public Use
  Company Number: US-GLAXOSMITHKLINE-US2019130910

PATIENT
  Age: 91 Year
  Sex: Female

DRUGS (1)
  1. ADVAIR DISKUS [Suspect]
     Active Substance: FLUTICASONE PROPIONATE\SALMETEROL XINAFOATE
     Indication: ASTHMA
     Dosage: 1 PUFF(S), BID
     Route: 065
     Dates: start: 2003

REACTIONS (6)
  - Fear of falling [Unknown]
  - Tinnitus [Recovered/Resolved]
  - Dizziness [Recovered/Resolved]
  - Oropharyngeal discomfort [Unknown]
  - Adverse drug reaction [Unknown]
  - Product dose omission issue [Unknown]
